FAERS Safety Report 4478363-0 (Version None)
Quarter: 2004Q3

REPORT INFORMATION
  Report Type: 
  Country: None (occurrence: None)
  Receive Date: 20040923
  Receipt Date: 20040624
  Transmission Date: 20050211
  Serious: No
  Sender: FDA-Public Use
  Company Number: USA040670981

PATIENT
  Age: 76 Year
  Sex: Female
  Weight: 66 kg

DRUGS (9)
  1. FORTEO [Suspect]
     Indication: OSTEOPOROSIS
     Dosage: 20 UG/1 DAY
     Dates: start: 20040529
  2. NEURONTIN [Concomitant]
  3. OMEPRAZOLE [Concomitant]
  4. CARDIZEM [Concomitant]
  5. LESCOL [Concomitant]
  6. PREDNISONE [Concomitant]
  7. OXYBUTYNIN [Concomitant]
  8. FLUOXETINE (FLYOXETINE) [Concomitant]
  9. AVALIDE [Concomitant]

REACTIONS (6)
  - AMNESIA [None]
  - ASTHENIA [None]
  - DIZZINESS [None]
  - FEELING ABNORMAL [None]
  - MUSCULAR WEAKNESS [None]
  - PHARYNGOLARYNGEAL PAIN [None]
